FAERS Safety Report 9715142 (Version 2)
Quarter: 2013Q4

REPORT INFORMATION
  Report Type: Spontaneous
  Country: US (occurrence: US)
  Receive Date: 20131126
  Receipt Date: 20131126
  Transmission Date: 20140711
  Serious: Yes (Hospitalization, Other)
  Sender: FDA-Public Use
  Company Number: US-ACORDA-ACO_38988_2013

PATIENT
  Age: 68 Year
  Sex: Male

DRUGS (1)
  1. AMPYRA [Suspect]
     Indication: MULTIPLE SCLEROSIS

REACTIONS (9)
  - Fall [Recovered/Resolved]
  - Kidney infection [Recovered/Resolved]
  - Prostatomegaly [Not Recovered/Not Resolved]
  - Bladder hypertrophy [Not Recovered/Not Resolved]
  - Cystitis [Recovered/Resolved]
  - Blood urine present [Not Recovered/Not Resolved]
  - Cough [Recovered/Resolved]
  - Constipation [Not Recovered/Not Resolved]
  - Nasopharyngitis [Recovered/Resolved]
